FAERS Safety Report 18119698 (Version 4)
Quarter: 2022Q4

REPORT INFORMATION
  Report Type: Spontaneous
  Country: US (occurrence: US)
  Receive Date: 20200806
  Receipt Date: 20221003
  Transmission Date: 20230112
  Serious: Yes (Other)
  Sender: FDA-Public Use
  Company Number: US-GILEAD-2020-0487217

PATIENT
  Age: 56 Year
  Sex: Male
  Weight: 180 kg

DRUGS (31)
  1. TRUVADA [Suspect]
     Active Substance: EMTRICITABINE\TENOFOVIR DISOPROXIL FUMARATE
     Indication: HIV infection
     Dosage: UNK
     Route: 048
     Dates: start: 20050107, end: 201512
  2. DESCOVY [Concomitant]
     Active Substance: EMTRICITABINE\TENOFOVIR ALAFENAMIDE FUMARATE
  3. GENVOYA [Concomitant]
     Active Substance: COBICISTAT\ELVITEGRAVIR\EMTRICITABINE\TENOFOVIR ALAFENAMIDE FUMARATE
  4. SYMTUZA [Concomitant]
     Active Substance: COBICISTAT\DARUNAVIR\EMTRICITABINE\TENOFOVIR ALAFENAMIDE
  5. TAMSULOSIN [Concomitant]
     Active Substance: TAMSULOSIN
  6. CALCIUM\CHOLECALCIFEROL [Concomitant]
     Active Substance: CALCIUM\CHOLECALCIFEROL
  7. ACETAMINOPHEN [Concomitant]
     Active Substance: ACETAMINOPHEN
  8. AMOXICILLIN [Concomitant]
     Active Substance: AMOXICILLIN
  9. ASPIRIN [Concomitant]
     Active Substance: ASPIRIN
  10. CORTISONE [Concomitant]
     Active Substance: CORTISONE
  11. FLEET LAXATIVE [Concomitant]
  12. FLOMAX [Concomitant]
     Active Substance: TAMSULOSIN HYDROCHLORIDE
  13. OMEPRAZOLE [Concomitant]
     Active Substance: OMEPRAZOLE
  14. PENICILLIN [Concomitant]
     Active Substance: PENICILLIN
  15. SIMVASTATIN [Concomitant]
     Active Substance: SIMVASTATIN
  16. EPIVIR [Concomitant]
     Active Substance: LAMIVUDINE
  17. INVIRASE [Concomitant]
     Active Substance: SAQUINAVIR MESYLATE
  18. RETROVIR [Concomitant]
     Active Substance: ZIDOVUDINE
  19. SUSTIVA [Concomitant]
     Active Substance: EFAVIRENZ
  20. TIVICAY [Concomitant]
     Active Substance: DOLUTEGRAVIR SODIUM
  21. TRIZIVIR [Concomitant]
     Active Substance: ABACAVIR SULFATE\LAMIVUDINE\ZIDOVUDINE
  22. VIRACEPT [Concomitant]
     Active Substance: NELFINAVIR MESYLATE
  23. VIRAMUNE [Concomitant]
     Active Substance: NEVIRAPINE
  24. VIRAMUNE XR [Concomitant]
     Active Substance: NEVIRAPINE
  25. ZERIT [Concomitant]
     Active Substance: STAVUDINE
  26. ALPRAZOLAM [Concomitant]
     Active Substance: ALPRAZOLAM
  27. WELLBUTRIN XL [Concomitant]
     Active Substance: BUPROPION HYDROCHLORIDE
  28. DICYCLOMINE [Concomitant]
     Active Substance: DICYCLOMINE HYDROCHLORIDE
  29. XYOSTED [Concomitant]
     Active Substance: TESTOSTERONE ENANTHATE
  30. VASCEPA [Concomitant]
     Active Substance: ICOSAPENT ETHYL
  31. TADALAFIL [Concomitant]
     Active Substance: TADALAFIL

REACTIONS (14)
  - Chronic kidney disease [Not Recovered/Not Resolved]
  - Osteonecrosis [Unknown]
  - Bone loss [Not Recovered/Not Resolved]
  - Renal failure [Not Recovered/Not Resolved]
  - Osteopenia [Not Recovered/Not Resolved]
  - Tooth loss [Not Recovered/Not Resolved]
  - Bone density decreased [Unknown]
  - Tooth disorder [Unknown]
  - Fatigue [Not Recovered/Not Resolved]
  - Emotional distress [Not Recovered/Not Resolved]
  - Anxiety [Not Recovered/Not Resolved]
  - Creatinine urine increased [Unknown]
  - Asthenia [Not Recovered/Not Resolved]
  - Pain [Not Recovered/Not Resolved]

NARRATIVE: CASE EVENT DATE: 20170101
